FAERS Safety Report 9871134 (Version 1)
Quarter: 2014Q1

REPORT INFORMATION
  Report Type: Spontaneous
  Country: US (occurrence: None)
  Receive Date: 20140204
  Receipt Date: 20140204
  Transmission Date: 20141002
  Serious: Yes (Death)
  Sender: FDA-Public Use
  Company Number: None

PATIENT
  Age: 51 Year
  Sex: Male

DRUGS (1)
  1. XELODA 500 MG GENENTECH [Suspect]
     Indication: RENAL CANCER
     Route: 048
     Dates: start: 20131024, end: 20140108

REACTIONS (1)
  - Disease progression [None]
